FAERS Safety Report 14392116 (Version 1)
Quarter: 2018Q1

REPORT INFORMATION
  Report Type: Spontaneous
  Country: US (occurrence: US)
  Receive Date: 20180112
  Receipt Date: 20180112
  Transmission Date: 20180509
  Serious: No
  Sender: FDA-Public Use
  Company Number: None

PATIENT
  Age: 57 Year
  Sex: Female

DRUGS (1)
  1. VANCOMYCIN 1GRAM FRESNUIS KABI [Suspect]
     Active Substance: VANCOMYCIN
     Indication: BACTERAEMIA
     Route: 042
     Dates: start: 20171227, end: 20180111

REACTIONS (2)
  - Tinnitus [None]
  - Hyperhidrosis [None]

NARRATIVE: CASE EVENT DATE: 20180111
